FAERS Safety Report 15641340 (Version 1)
Quarter: 2018Q4

REPORT INFORMATION
  Report Type: Spontaneous
  Country: CZ (occurrence: CZ)
  Receive Date: 20181120
  Receipt Date: 20181120
  Transmission Date: 20190205
  Serious: Yes (Other)
  Sender: FDA-Public Use
  Company Number: PHHY2018CZ157984

PATIENT
  Sex: Male

DRUGS (4)
  1. INTERFERON ALFA NOS [Concomitant]
     Active Substance: INTERFERON ALFA-2A OR INTERFERON ALFA-2B
     Indication: PRODUCT USED FOR UNKNOWN INDICATION
     Dosage: 5 MIU, TIW
     Route: 058
  2. SANDOSTATIN LAR DEPOT [Suspect]
     Active Substance: OCTREOTIDE ACETATE
     Dosage: 30 MG, UNK
     Route: 065
  3. INTERFERON ALFA NOS [Concomitant]
     Active Substance: INTERFERON ALFA-2A OR INTERFERON ALFA-2B
     Dosage: 3 MIU, TIW
     Route: 058
  4. SANDOSTATIN LAR DEPOT [Suspect]
     Active Substance: OCTREOTIDE ACETATE
     Indication: NEUROENDOCRINE TUMOUR
     Dosage: 20 MG, UNK
     Route: 065

REACTIONS (7)
  - Malignant neoplasm progression [Not Recovered/Not Resolved]
  - Diarrhoea [Unknown]
  - Cardiac failure [Unknown]
  - Metastases to liver [Not Recovered/Not Resolved]
  - Blood chromogranin A increased [Unknown]
  - Metastases to peritoneum [Not Recovered/Not Resolved]
  - Flushing [Unknown]

NARRATIVE: CASE EVENT DATE: 201206
